FAERS Safety Report 13247782 (Version 1)
Quarter: 2017Q1

REPORT INFORMATION
  Report Type: Spontaneous
  Country: FR (occurrence: FR)
  Receive Date: 20170217
  Receipt Date: 20170217
  Transmission Date: 20170428
  Serious: Yes (Hospitalization)
  Sender: FDA-Public Use
  Company Number: FR-TEVA-740071ROM

PATIENT
  Age: 80 Year
  Sex: Female
  Weight: 58 kg

DRUGS (2)
  1. SOTALOL 80 MG [Suspect]
     Active Substance: SOTALOL
     Dosage: 1 DOSAGE FORMS DAILY;
  2. OFLOXACINE [Interacting]
     Active Substance: OFLOXACIN
     Indication: URINARY TRACT INFECTION
     Route: 065

REACTIONS (3)
  - Arrhythmia [Recovered/Resolved]
  - Drug interaction [Unknown]
  - Tachycardia [Recovered/Resolved]
